FAERS Safety Report 7807928-0 (Version None)
Quarter: 2011Q4

REPORT INFORMATION
  Report Type: 
  Country: None (occurrence: None)
  Receive Date: 20111011
  Receipt Date: 20111011
  Transmission Date: 20120403
  Serious: Yes (Other)
  Sender: FDA-Public Use
  Company Number: None

PATIENT

DRUGS (2)
  1. LUPRON [Suspect]
     Indication: ENDOMETRIOSIS
  2. LUPRON [Concomitant]

REACTIONS (3)
  - BONE DENSITY DECREASED [None]
  - BLOOD OESTROGEN DECREASED [None]
  - OVARIAN DISORDER [None]
